FAERS Safety Report 9683655 (Version 1)
Quarter: 2013Q4

REPORT INFORMATION
  Report Type: Report from Study
  Country: US (occurrence: US)
  Receive Date: 20131112
  Receipt Date: 20131112
  Transmission Date: 20140711
  Serious: Yes (Other)
  Sender: FDA-Public Use
  Company Number: US-JNJFOC-20131104490

PATIENT
  Age: 40 Year
  Sex: Male

DRUGS (5)
  1. REMICADE [Suspect]
     Indication: CROHN^S DISEASE
     Dosage: STARTED 3 YEARS BACK.
     Route: 042
  2. REMICADE [Suspect]
     Indication: CROHN^S DISEASE
     Dosage: STARTED 3 YEARS BACK.
     Route: 042
     Dates: start: 2013
  3. PREDNISONE [Concomitant]
     Route: 065
  4. TYLENOL [Concomitant]
     Indication: PREMEDICATION
     Route: 065
  5. ZYRTEC [Concomitant]
     Indication: PREMEDICATION
     Route: 065

REACTIONS (2)
  - Colectomy [Unknown]
  - Rectal discharge [Not Recovered/Not Resolved]
